FAERS Safety Report 9209774 (Version 1)
Quarter: 2013Q1

REPORT INFORMATION
  Report Type: Spontaneous
  Country: US (occurrence: None)
  Receive Date: 20120820
  Receipt Date: 20120820
  Transmission Date: 20140127
  Serious: No
  Sender: FDA-Public Use
  Company Number: 1000030824

PATIENT
  Age: 83 Year
  Sex: Female

DRUGS (10)
  1. VIIBRYD (VILAZODONE) [Suspect]
     Indication: DEPRESSION
     Dosage: 1 IN 1 D
     Route: 048
     Dates: start: 201203
  2. SIMVASTATIN(SIMVASTATIN)(SIMVASTATIN) [Concomitant]
  3. NEXIUM(ESOMEPRAZOLE)(ESOMEPRAZOLE) [Concomitant]
  4. NIFEDIAC(NIFEDIPINE)(NIFEDIPINE) [Concomitant]
  5. POTASSIUM(POTASSIUM)(POTASSIUM) [Concomitant]
  6. ISOSORBIDE(ISOSORBIDE)(ISOSORBIDE) [Concomitant]
  7. ENABLEX(DARIFENACIN)(DARIFENACIN) [Concomitant]
  8. MELOXICAM (MELOXICAM)(MELOXICAM) [Concomitant]
  9. ARICEPT(DONEPEZIL HYDROCHLORIDE)(DONEPEZIL HYDROCHLORIDE) [Concomitant]
  10. LORAZEPAM(LORAZEPMAN(LORAZEPAM) [Concomitant]

REACTIONS (1)
  - Depression [None]
